FAERS Safety Report 18928766 (Version 1)
Quarter: 2021Q1

REPORT INFORMATION
  Report Type: Report from Study
  Country: TH (occurrence: TH)
  Receive Date: 20210223
  Receipt Date: 20210223
  Transmission Date: 20210420
  Serious: Yes (Hospitalization)
  Sender: FDA-Public Use
  Company Number: NVSC2021TH030856

PATIENT
  Sex: Male

DRUGS (1)
  1. AFINITOR [Suspect]
     Active Substance: EVEROLIMUS
     Indication: METASTATIC RENAL CELL CARCINOMA
     Dosage: 5 MG
     Route: 065

REACTIONS (4)
  - Illness [Unknown]
  - Pulmonary embolism [Recovering/Resolving]
  - Drug hypersensitivity [Recovering/Resolving]
  - Pneumonitis [Recovering/Resolving]

NARRATIVE: CASE EVENT DATE: 202004
